FAERS Safety Report 15028281 (Version 1)
Quarter: 2018Q2

REPORT INFORMATION
  Report Type: Report from Study
  Country: ZA (occurrence: ZA)
  Receive Date: 20180619
  Receipt Date: 20180619
  Transmission Date: 20180711
  Serious: Yes (Death)
  Sender: FDA-Public Use
  Company Number: PHHY2018ZA024671

PATIENT
  Age: 54 Year
  Sex: Female

DRUGS (1)
  1. TAREG [Suspect]
     Active Substance: VALSARTAN
     Indication: HYPERTENSION
     Dosage: 160 MG, UNK
     Route: 048
     Dates: start: 201712, end: 201806

REACTIONS (1)
  - Death [Fatal]

NARRATIVE: CASE EVENT DATE: 20180609
